FAERS Safety Report 4712999-4 (Version None)
Quarter: 2005Q3

REPORT INFORMATION
  Report Type: 
  Country: None (occurrence: None)
  Receive Date: 20050711
  Receipt Date: 20050624
  Transmission Date: 20060218
  Serious: Yes (Hospitalization)
  Sender: FDA-Public Use
  Company Number: 11757

PATIENT
  Age: 14 Year
  Sex: Female

DRUGS (3)
  1. METHOTREXATE [Suspect]
     Indication: JUVENILE ARTHRITIS
     Dosage: 25 MG WEEKLY, SC
     Route: 058
     Dates: start: 20030401
  2. ETANERCEPT [Suspect]
     Indication: ARTHROPATHY
     Dosage: 25 MG 2/WK, SC
     Route: 058
     Dates: start: 20040318
  3. PIROXICAM [Concomitant]

REACTIONS (1)
  - OSTEOARTHRITIS [None]
